FAERS Safety Report 7354871-X (Version None)
Quarter: 2011Q1

REPORT INFORMATION
  Report Type: 
  Country: None (occurrence: None)
  Receive Date: 20110307
  Receipt Date: 20110304
  Transmission Date: 20110831
  Serious: Yes (Hospitalization)
  Sender: FDA-Public Use
  Company Number: SP03239

PATIENT
  Age: 44 Year
  Sex: Female

DRUGS (8)
  1. PREDNISOLONE FOAM (ENEMA) [Concomitant]
  2. PENTOXIFYLLINE [Concomitant]
  3. MESALAMINE FOAM (ENEMA) [Concomitant]
  4. FORTIJUICE [Concomitant]
  5. BALSALAZIDE DISODIUM [Suspect]
     Indication: COLITIS ULCERATIVE
     Dosage: 6750 MG (2250 MG,3 IN 1 D)
     Dates: start: 20080206, end: 20080317
  6. ERYTHROMYCIN [Concomitant]
  7. FORCEVAL VITAMINS (CAPSULES) [Concomitant]
  8. FERROUS SULFATE TAB [Concomitant]

REACTIONS (1)
  - EOSINOPHILIC PNEUMONIA [None]
